FAERS Safety Report 20575838 (Version 7)
Quarter: 2023Q2

REPORT INFORMATION
  Report Type: Report from Study
  Country: US (occurrence: US)
  Receive Date: 20220310
  Receipt Date: 20230401
  Transmission Date: 20230721
  Serious: Yes (Hospitalization, Other)
  Sender: FDA-Public Use
  Company Number: US-NOVARTISPH-NVSC2022US054399

PATIENT
  Sex: Male

DRUGS (3)
  1. COSENTYX [Suspect]
     Active Substance: SECUKINUMAB
     Indication: Psoriatic arthropathy
     Dosage: UNK
     Route: 065
     Dates: end: 202211
  2. COSENTYX [Suspect]
     Active Substance: SECUKINUMAB
     Dosage: UNK
     Route: 065
  3. HUMIRA [Suspect]
     Active Substance: ADALIMUMAB
     Indication: Product used for unknown indication
     Dosage: UNK
     Route: 065

REACTIONS (12)
  - Cardiac disorder [Unknown]
  - Myocardial infarction [Unknown]
  - COVID-19 [Unknown]
  - Stomatitis [Recovered/Resolved]
  - Stomatitis [Unknown]
  - Muscle spasms [Unknown]
  - Arthralgia [Unknown]
  - Pelvic pain [Unknown]
  - Aphthous ulcer [Unknown]
  - Illness [Unknown]
  - Pruritus [Unknown]
  - Drug ineffective [Unknown]
